FAERS Safety Report 9287862 (Version 1)
Quarter: 2013Q2

REPORT INFORMATION
  Report Type: Spontaneous
  Country: US (occurrence: US)
  Receive Date: 20130514
  Receipt Date: 20130514
  Transmission Date: 20140414
  Serious: No
  Sender: FDA-Public Use
  Company Number: US-BAYER-2013-059518

PATIENT
  Sex: Female
  Weight: 61.68 kg

DRUGS (3)
  1. BETASERON [Suspect]
     Dosage: 8 MIU, QOD
     Route: 058
  2. TEMAZEPAM [Concomitant]
     Dosage: 15 MG, UNK
  3. ZANAFLEX [Concomitant]
     Dosage: 2 MG, UNK

REACTIONS (2)
  - Asthenia [Unknown]
  - Fatigue [Unknown]
